FAERS Safety Report 7633598-0 (Version None)
Quarter: 2011Q3

REPORT INFORMATION
  Report Type: 
  Country: None (occurrence: None)
  Receive Date: 20110725
  Receipt Date: 20110719
  Transmission Date: 20111222
  Serious: Yes (Hospitalization)
  Sender: FDA-Public Use
  Company Number: US-GLAXOSMITHKLINE-A0936404A

PATIENT
  Age: 73 Year
  Sex: Female

DRUGS (2)
  1. COREG [Suspect]
     Indication: HYPERTENSION
     Dosage: 12.5MG PER DAY
     Route: 048
     Dates: start: 20010101
  2. UNSPECIFIED MEDICATIONS [Concomitant]

REACTIONS (3)
  - HEART RATE DECREASED [None]
  - UPPER LIMB FRACTURE [None]
  - DIZZINESS [None]
